FAERS Safety Report 9124493 (Version 1)
Quarter: 2013Q1

REPORT INFORMATION
  Report Type: Spontaneous
  Country: ES (occurrence: ES)
  Receive Date: 20130227
  Receipt Date: 20130227
  Transmission Date: 20140127
  Serious: Yes (Other)
  Sender: FDA-Public Use
  Company Number: ES-ROCHE-1194615

PATIENT
  Age: 70 Year
  Sex: Male

DRUGS (2)
  1. LUCENTIS [Suspect]
     Indication: RETINAL VEIN OCCLUSION
     Route: 050
     Dates: end: 20130213
  2. TRIAMCINOLONE [Concomitant]

REACTIONS (3)
  - Drug hypersensitivity [Recovering/Resolving]
  - Pseudoendophthalmitis [Recovering/Resolving]
  - Uveitis [Recovering/Resolving]
